FAERS Safety Report 11713675 (Version 1)
Quarter: 2015Q4

REPORT INFORMATION
  Report Type: Spontaneous
  Country: DE (occurrence: DE)
  Receive Date: 20151109
  Receipt Date: 20151109
  Transmission Date: 20160304
  Serious: Yes (Disabling)
  Sender: FDA-Public Use
  Company Number: DE-AUROBINDO-AUR-APL-2015-10013

PATIENT
  Sex: Female
  Weight: 90 kg

DRUGS (1)
  1. FLECAINIDE ACTAVIS 50 MG TABLETS [Suspect]
     Active Substance: FLECAINIDE
     Indication: ATRIAL FIBRILLATION
     Dosage: 2 DF, DAILY
     Route: 048
     Dates: start: 201504

REACTIONS (1)
  - Muscle atrophy [Not Recovered/Not Resolved]
